FAERS Safety Report 20430671 (Version 1)
Quarter: 2022Q1

REPORT INFORMATION
  Report Type: Report from Study
  Country: US (occurrence: US)
  Receive Date: 20220204
  Receipt Date: 20220204
  Transmission Date: 20220424
  Serious: Yes (Hospitalization)
  Sender: FDA-Public Use
  Company Number: US-SERVIER-S21000835

PATIENT

DRUGS (6)
  1. PEGASPARGASE [Suspect]
     Active Substance: PEGASPARGASE
     Indication: Acute lymphocytic leukaemia
     Dosage: 2500 IU/M2, ONE DOSE, DAY 6
     Route: 042
     Dates: start: 20201217, end: 20201217
  2. DEXAMETHASONE [Suspect]
     Active Substance: DEXAMETHASONE
     Indication: Acute lymphocytic leukaemia
     Dosage: 6 MG/M2, BID, DAYS 1-25
     Route: 042
     Dates: start: 20201212, end: 20210112
  3. VINCRISTINE SULFATE [Suspect]
     Active Substance: VINCRISTINE SULFATE
     Indication: Acute lymphocytic leukaemia
     Dosage: 1.5 MG/M2, DAYS 4, 11, 18, 25
     Route: 042
     Dates: start: 20201215, end: 20210105
  4. CYTARABINE [Suspect]
     Active Substance: CYTARABINE
     Indication: Acute lymphocytic leukaemia
     Dosage: 40 MG, OTHER
     Route: 037
     Dates: start: 20201211, end: 20201228
  5. METHOTREXATE [Suspect]
     Active Substance: METHOTREXATE
     Indication: Acute lymphocytic leukaemia
     Dosage: 12 MG, ONE DOSE, DAY 18
     Route: 037
     Dates: start: 20201228, end: 20201228
  6. HYDROCORTISONE SODIUM SUCCINATE [Suspect]
     Active Substance: HYDROCORTISONE SODIUM SUCCINATE
     Indication: Acute lymphocytic leukaemia
     Dosage: 15 MG, ONE DOSE
     Route: 037
     Dates: start: 20201228, end: 20201228

REACTIONS (3)
  - Large intestine perforation [Unknown]
  - Colitis [Recovering/Resolving]
  - Peritonitis [Unknown]

NARRATIVE: CASE EVENT DATE: 20210117
